FAERS Safety Report 6003577-8 (Version None)
Quarter: 2008Q4

REPORT INFORMATION
  Report Type: 
  Country: None (occurrence: None)
  Receive Date: 20081216
  Receipt Date: 20081204
  Transmission Date: 20090506
  Serious: Yes (Life-Threatening, Hospitalization)
  Sender: FDA-Public Use
  Company Number: DE-BAYER-200832292GPV

PATIENT
  Age: 59 Year
  Sex: Female
  Weight: 56 kg

DRUGS (7)
  1. MOXIFLOXACIN HCL [Suspect]
     Indication: ATYPICAL MYCOBACTERIAL INFECTION
     Dosage: TOTAL DAILY DOSE: 100 MG  UNIT DOSE: 400 MG
     Route: 048
     Dates: start: 20081107, end: 20081117
  2. ALLOPURINOL [Concomitant]
     Indication: ATYPICAL MYCOBACTERIAL INFECTION
     Dosage: TOTAL DAILY DOSE: 300 MG
     Route: 048
     Dates: start: 20081026, end: 20081117
  3. CIMETIDIN [Concomitant]
     Indication: ATYPICAL MYCOBACTERIAL INFECTION
     Dosage: TOTAL DAILY DOSE: 1600 MG
     Route: 048
     Dates: start: 20081111, end: 20081117
  4. CLARITHROMYCIN [Concomitant]
     Indication: ATYPICAL MYCOBACTERIAL INFECTION
     Dosage: TOTAL DAILY DOSE: 1000 MG
     Route: 048
     Dates: start: 20081102, end: 20081117
  5. ETHAMBUTOL HYDROCHLORIDE [Concomitant]
     Dosage: TOTAL DAILY DOSE: 1200 MG
     Route: 048
     Dates: start: 20081021, end: 20081117
  6. RIFABUTIN [Concomitant]
     Indication: ATYPICAL MYCOBACTERIAL INFECTION
     Dosage: TOTAL DAILY DOSE: 300 MG
     Route: 048
     Dates: start: 20081107, end: 20081117
  7. LEVOTHYROXINE SODIUM [Concomitant]
     Indication: HYPOTHYROIDISM
     Dosage: TOTAL DAILY DOSE: 75 ?G
     Route: 048

REACTIONS (4)
  - ACUTE HEPATIC FAILURE [None]
  - DIARRHOEA [None]
  - RASH GENERALISED [None]
  - VOMITING [None]
